FAERS Safety Report 11708139 (Version 1)
Quarter: 2015Q4

REPORT INFORMATION
  Report Type: Spontaneous
  Country: KR (occurrence: KR)
  Receive Date: 20151107
  Receipt Date: 20151107
  Transmission Date: 20160304
  Serious: Yes (Hospitalization)
  Sender: FDA-Public Use
  Company Number: KR-AMGEN-KORCT2015117809

PATIENT
  Age: 67 Year
  Sex: Male

DRUGS (24)
  1. RITUXIMAB [Concomitant]
     Active Substance: RITUXIMAB
     Dosage: 705 MG, UNK
     Route: 042
     Dates: start: 20150724, end: 20150724
  2. RITUXIMAB [Concomitant]
     Active Substance: RITUXIMAB
     Dosage: 682.5 MG, UNK
     Route: 042
     Dates: start: 20151013, end: 20151013
  3. G-LASTA [Suspect]
     Active Substance: PEGFILGRASTIM
     Dosage: 6 MG, 1X/3WEEKS
     Route: 058
     Dates: start: 20151014
  4. CYCLOPHOSPHAMIDE. [Concomitant]
     Active Substance: CYCLOPHOSPHAMIDE
     Dosage: 1051.88 MG, UNK
     Route: 042
     Dates: start: 20150817, end: 20150817
  5. DOXORUBICIN [Concomitant]
     Active Substance: DOXORUBICIN
     Dosage: 70.13 MG, UNK
     Route: 042
     Dates: start: 20150817, end: 20150817
  6. VINCRISTINE [Concomitant]
     Active Substance: VINCRISTINE
     Dosage: 2 MG, UNK
     Route: 042
     Dates: start: 20150817, end: 20150817
  7. PREDNISOLONE. [Concomitant]
     Active Substance: PREDNISOLONE
     Dosage: 60 MG, UNK
     Route: 048
     Dates: start: 20150817, end: 20150817
  8. RITUXIMAB [Concomitant]
     Active Substance: RITUXIMAB
     Dosage: 701.25 MG, UNK
     Route: 042
     Dates: start: 20150817, end: 20150817
  9. DOXORUBICIN [Concomitant]
     Active Substance: DOXORUBICIN
     Dosage: 68.25 MG, UNK
     Route: 042
     Dates: start: 20151013, end: 20151013
  10. VINCRISTINE [Concomitant]
     Active Substance: VINCRISTINE
     Dosage: 2 MG, UNK
     Route: 042
     Dates: start: 20151013, end: 20151013
  11. G-LASTA [Suspect]
     Active Substance: PEGFILGRASTIM
     Indication: FEBRILE NEUTROPENIA
     Dosage: 6 MG, 1X/3WEEKS
     Route: 058
     Dates: start: 20150725
  12. G-LASTA [Suspect]
     Active Substance: PEGFILGRASTIM
     Dosage: 6 MG, 1X/3WEEKS
     Route: 058
     Dates: start: 20150818
  13. RITUXIMAB [Concomitant]
     Active Substance: RITUXIMAB
     Dosage: 705 MG, UNK
     Route: 042
     Dates: start: 20150914, end: 20150914
  14. CYCLOPHOSPHAMIDE. [Concomitant]
     Active Substance: CYCLOPHOSPHAMIDE
     Dosage: 1023.75 MG, UNK
     Route: 042
     Dates: start: 20151013, end: 20151013
  15. VINCRISTINE [Concomitant]
     Active Substance: VINCRISTINE
     Dosage: 2 MG, UNK
     Route: 042
     Dates: start: 20150724, end: 20150724
  16. VINCRISTINE [Concomitant]
     Active Substance: VINCRISTINE
     Dosage: 2 MG, UNK
     Route: 042
     Dates: start: 20150914, end: 20150914
  17. DOXORUBICIN [Concomitant]
     Active Substance: DOXORUBICIN
     Dosage: 70.5 MG, UNK
     Route: 042
     Dates: start: 20150724, end: 20150724
  18. DOXORUBICIN [Concomitant]
     Active Substance: DOXORUBICIN
     Dosage: 70.5 MG, UNK
     Route: 042
     Dates: start: 20150914, end: 20150914
  19. G-LASTA [Suspect]
     Active Substance: PEGFILGRASTIM
     Dosage: 6 MG, 1X/3WEEKS
     Route: 058
     Dates: start: 20150915
  20. CYCLOPHOSPHAMIDE. [Concomitant]
     Active Substance: CYCLOPHOSPHAMIDE
     Dosage: 1057.5 MG, UNK
     Route: 042
     Dates: start: 20150914, end: 20150914
  21. PREDNISOLONE. [Concomitant]
     Active Substance: PREDNISOLONE
     Dosage: 60 MG, UNK
     Route: 048
     Dates: start: 20150914, end: 20150914
  22. CYCLOPHOSPHAMIDE. [Concomitant]
     Active Substance: CYCLOPHOSPHAMIDE
     Dosage: 1057.5 MG, UNK
     Route: 042
     Dates: start: 20150724, end: 20150724
  23. PREDNISOLONE. [Concomitant]
     Active Substance: PREDNISOLONE
     Dosage: 60 MG, UNK
     Route: 048
     Dates: start: 20150724, end: 20150724
  24. PREDNISOLONE. [Concomitant]
     Active Substance: PREDNISOLONE
     Dosage: 60 MG, UNK
     Route: 048
     Dates: start: 20151013, end: 20151013

REACTIONS (1)
  - Neutropenia [Recovered/Resolved]

NARRATIVE: CASE EVENT DATE: 20151022
